FAERS Safety Report 9386615 (Version 9)
Quarter: 2014Q1

REPORT INFORMATION
  Report Type: Report from Study
  Country: CA (occurrence: CA)
  Receive Date: 20130708
  Receipt Date: 20140203
  Transmission Date: 20141002
  Serious: Yes (Death, Hospitalization)
  Sender: FDA-Public Use
  Company Number: PHHY2013CA009345

PATIENT
  Age: 77 Year
  Sex: Male

DRUGS (4)
  1. SANDOSTATIN [Suspect]
     Indication: ANAEMIA
     Dosage: UNK UKN, BID
     Route: 058
     Dates: start: 20130103
  2. SANDOSTATIN [Suspect]
     Indication: OFF LABEL USE
  3. SANDOSTATIN LAR [Suspect]
     Indication: ANAEMIA
     Dosage: 10 MG, QMO
     Route: 030
     Dates: start: 20130215
  4. SANDOSTATIN LAR [Suspect]
     Indication: OFF LABEL USE

REACTIONS (10)
  - Death [Fatal]
  - Bacterial infection [Unknown]
  - Device related infection [Unknown]
  - Cardiac disorder [Unknown]
  - Fall [Unknown]
  - Hip fracture [Unknown]
  - Pulmonary oedema [Unknown]
  - Hernia [Unknown]
  - Skin irritation [Not Recovered/Not Resolved]
  - Injection site pain [Unknown]
